FAERS Safety Report 6537952-X (Version None)
Quarter: 2010Q1

REPORT INFORMATION
  Report Type: 
  Country: None (occurrence: None)
  Receive Date: 20100111
  Receipt Date: 20091223
  Transmission Date: 20100710
  Serious: Yes (Death)
  Sender: FDA-Public Use
  Company Number: 2009003890

PATIENT
  Age: 54 Year
  Sex: Male

DRUGS (1)
  1. TARCEVA [Suspect]
     Indication: NON-SMALL CELL LUNG CANCER
     Dosage: (150 MG,QD),ORAL
     Route: 048
     Dates: start: 20080701, end: 20090801

REACTIONS (5)
  - DIARRHOEA [None]
  - DRUG INTOLERANCE [None]
  - FATIGUE [None]
  - GROWTH OF EYELASHES [None]
  - TREATMENT NONCOMPLIANCE [None]
